FAERS Safety Report 9661278 (Version 3)
Quarter: 2013Q4

REPORT INFORMATION
  Report Type: Spontaneous
  Country: US (occurrence: US)
  Receive Date: 20131031
  Receipt Date: 20131211
  Transmission Date: 20140711
  Serious: Yes (Hospitalization)
  Sender: FDA-Public Use
  Company Number: US-FRI-1000050719

PATIENT
  Age: 52 Year
  Sex: Female
  Weight: 65.7 kg

DRUGS (9)
  1. VIIBRYD [Suspect]
     Indication: DEPRESSION
     Dosage: 10 MG
     Route: 048
     Dates: start: 201301, end: 2013
  2. VIIBRYD [Suspect]
     Dosage: 20 MG
     Route: 048
     Dates: start: 2013, end: 2013
  3. VIIBRYD [Suspect]
     Indication: DEPRESSION
     Dosage: 40 MG
     Route: 048
     Dates: start: 2013, end: 201309
  4. SYNTHROID [Concomitant]
     Indication: HYPOTHYROIDISM
     Dosage: 100 MCG
  5. LAMOTRIGINE [Concomitant]
     Dosage: 200 MG
  6. GABAPENTIN [Concomitant]
     Dosage: 1800 MG
     Route: 048
  7. SEROQUEL [Concomitant]
  8. AMLODIPINE/BENAZEPRIL [Concomitant]
     Indication: HYPERTENSION
     Dosage: 5/20 MG DAILY
  9. LUNESTA [Concomitant]
     Indication: INSOMNIA
     Dosage: 3 MG AT BEDTIME

REACTIONS (1)
  - Paralysis [Recovered/Resolved]
